FAERS Safety Report 6298110-X (Version None)
Quarter: 2009Q3

REPORT INFORMATION
  Report Type: 
  Country: None (occurrence: None)
  Receive Date: 20090805
  Receipt Date: 20090722
  Transmission Date: 20100115
  Serious: Yes (Other)
  Sender: FDA-Public Use
  Company Number: PHHY2009CA29314

PATIENT
  Sex: Male

DRUGS (5)
  1. NEORAL [Suspect]
     Indication: EYE INFLAMMATION
     Dosage: 125 MG, BID
     Route: 048
  2. PREDNISOLONE [Concomitant]
     Dosage: 80 MG
  3. PREDNISOLONE [Concomitant]
     Dosage: 60 MG DAILY
     Route: 048
  4. ATROPINE [Concomitant]
     Indication: EYE INFLAMMATION
     Dosage: UNK
  5. PRED FORTE [Concomitant]
     Indication: EYE INFLAMMATION
     Dosage: QID

REACTIONS (1)
  - EYE DISORDER [None]
